FAERS Safety Report 9219637 (Version 1)
Quarter: 2013Q2

REPORT INFORMATION
  Report Type: Spontaneous
  Country: IT (occurrence: IT)
  Receive Date: 20130409
  Receipt Date: 20130409
  Transmission Date: 20140414
  Serious: Yes (Death, Hospitalization)
  Sender: FDA-Public Use
  Company Number: IT-ROCHE-1205971

PATIENT
  Age: 75 Year
  Sex: Male

DRUGS (5)
  1. ACTILYSE [Suspect]
     Indication: ISCHAEMIC STROKE
     Route: 042
     Dates: start: 20110201, end: 20110201
  2. CARDIOASPIRIN [Concomitant]
     Route: 065
     Dates: start: 20110201
  3. MODURETIC [Concomitant]
     Dosage: 50MG + 50MG
     Route: 065
     Dates: start: 20110201
  4. CONCOR [Concomitant]
     Route: 065
     Dates: start: 20110201
  5. NEXIUM [Concomitant]
     Route: 042
     Dates: start: 20110201, end: 20110205

REACTIONS (3)
  - Cerebral haemorrhage [Fatal]
  - Haematuria [Fatal]
  - Pulmonary embolism [Fatal]
